FAERS Safety Report 5825980-9 (Version None)
Quarter: 2008Q3

REPORT INFORMATION
  Report Type: 
  Country: None (occurrence: None)
  Receive Date: 20080723
  Receipt Date: 20080711
  Transmission Date: 20090109
  Serious: Yes (Hospitalization, Other)
  Sender: FDA-Public Use
  Company Number: 2007JP005799

PATIENT
  Age: 22 Year
  Sex: Male
  Weight: 45.8 kg

DRUGS (14)
  1. PROGRAF [Suspect]
     Indication: SMALL INTESTINE TRANSPLANT
     Dosage: 4 MG, BID, ORAL; ORAL
     Route: 048
     Dates: start: 20070301
  2. MEDROL [Suspect]
     Dosage: 8 MG, BID, ORAL
     Route: 048
     Dates: start: 20070409
  3. SULFAMETHOXAZOLE AND TRIMETHOPRIM [Suspect]
     Dosage: 0.5 G, TID, ORAL
     Route: 048
     Dates: start: 20070301
  4. VALIXA(VALGANCICLOVIR HYDROCHLORIDE) TABLET [Suspect]
     Indication: CYTOMEGALOVIRUS INFECTION
     Dosage: 1 DF, BID, ORAL
     Route: 048
     Dates: start: 20070627
  5. RAPAMUNE [Suspect]
     Dosage: 2 DF, UID/QD, ORAL
     Route: 048
     Dates: start: 20070627
  6. ZENAPAX [Suspect]
     Dates: start: 20070225, end: 20070801
  7. ANTI-IL-2 RECEPTOR ANTIBODY FORMULATION UNKNOWN [Concomitant]
  8. FUNGIZONE SYRUP [Concomitant]
  9. DIOVAN [Concomitant]
  10. MIYA-BM (CLOSTRIDIUM BUTYRICUM) FINE GRANULE [Concomitant]
  11. ENTERONON R (STREPTOCOCCUS FAECALIS, LACTOBACILLUS ACIDOPHILUS, STREPT [Concomitant]
  12. POLYMYXIN B SULFATE (POLYMYXIN B SULFATE) POWDER [Concomitant]
  13. MARZULENE S (LEVOGLUTAMIDE, SODIUM GUALENATE) GRANULE [Concomitant]
  14. TAKEPRON (LANSOPRAZOLE) ORDISPERSIBLE CR TABLET [Concomitant]

REACTIONS (9)
  - CATHETER RELATED INFECTION [None]
  - CYTOMEGALOVIRUS ENTEROCOLITIS [None]
  - DEHYDRATION [None]
  - ENTEROCOLITIS [None]
  - GRAFT COMPLICATION [None]
  - HYPERCHLORAEMIA [None]
  - HYPERKALAEMIA [None]
  - METABOLIC ACIDOSIS [None]
  - RENAL IMPAIRMENT [None]
